FAERS Safety Report 4349038-3 (Version None)
Quarter: 2004Q2

REPORT INFORMATION
  Report Type: 
  Country: None (occurrence: None)
  Receive Date: 20040427
  Receipt Date: 20040427
  Transmission Date: 20050107
  Serious: Yes (Other)
  Sender: FDA-Public Use
  Company Number: None

PATIENT
  Age: 13 Year
  Sex: Female

DRUGS (3)
  1. DEPAKOTE [Suspect]
     Indication: AFFECTIVE DISORDER
     Dosage: 250 AM/750 PM PO
     Route: 048
     Dates: start: 20040217, end: 20040223
  2. QUETIAPINE [Concomitant]
  3. SERTRALINE [Concomitant]

REACTIONS (1)
  - NEUTROPHIL COUNT DECREASED [None]
